FAERS Safety Report 21329153 (Version 1)
Quarter: 2022Q3

REPORT INFORMATION
  Report Type: Spontaneous
  Country: IT (occurrence: IT)
  Receive Date: 20220913
  Receipt Date: 20220913
  Transmission Date: 20221026
  Serious: Yes (Hospitalization)
  Sender: FDA-Public Use
  Company Number: IT-NOVARTISPH-NVSC2022IT203933

PATIENT
  Age: 2 Month
  Sex: Female

DRUGS (2)
  1. CIPROFLOXACIN [Suspect]
     Active Substance: CIPROFLOXACIN
     Indication: Infection
     Dosage: UNK
     Route: 048
  2. PIPERACILLIN [Suspect]
     Active Substance: PIPERACILLIN
     Indication: Infection
     Dosage: UNK
     Route: 042

REACTIONS (10)
  - Aplasia pure red cell [Unknown]
  - Bicytopenia [Unknown]
  - Dermatitis exfoliative [Unknown]
  - Haemophagocytic lymphohistiocytosis [Unknown]
  - Drug reaction with eosinophilia and systemic symptoms [Unknown]
  - Eosinophilia [Unknown]
  - Pyrexia [Unknown]
  - Rash maculo-papular [Unknown]
  - Hepatic cytolysis [Unknown]
  - Neutropenia [Unknown]
